FAERS Safety Report 10740085 (Version 6)
Quarter: 2016Q3

REPORT INFORMATION
  Report Type: Report from Study
  Country: CA (occurrence: CA)
  Receive Date: 20150127
  Receipt Date: 20160803
  Transmission Date: 20161109
  Serious: Yes (Other)
  Sender: FDA-Public Use
  Company Number: CA-ROCHE-1314168

PATIENT
  Age: 68 Year
  Sex: Female
  Weight: 104.42 kg

DRUGS (19)
  1. RAMIPRIL. [Concomitant]
     Active Substance: RAMIPRIL
     Route: 065
  2. FOLIC ACID. [Concomitant]
     Active Substance: FOLIC ACID
  3. TYLENOL #4 [Concomitant]
  4. RITUXAN [Suspect]
     Active Substance: RITUXIMAB
     Indication: RHEUMATOID ARTHRITIS
     Dosage: DAY 1 AND DAY 15, 24/JUN/2016
     Route: 042
     Dates: start: 20131125
  5. NORTRIPTYLINE [Concomitant]
     Active Substance: NORTRIPTYLINE
  6. METHOTREXATE. [Concomitant]
     Active Substance: METHOTREXATE
     Route: 048
  7. PREDNISONE. [Concomitant]
     Active Substance: PREDNISONE
     Route: 065
  8. ACETAMINOPHEN. [Concomitant]
     Active Substance: ACETAMINOPHEN
     Indication: PREMEDICATION
     Route: 048
     Dates: start: 20131125
  9. RITUXAN [Suspect]
     Active Substance: RITUXIMAB
     Dosage: 500 MG ONCE
     Route: 042
     Dates: start: 20160623
  10. SIMBICORT [Concomitant]
     Active Substance: BUDESONIDE\FORMOTEROL FUMARATE
  11. BRICANYL [Concomitant]
     Active Substance: TERBUTALINE SULFATE
     Dosage: AS REQUIRED
     Route: 065
  12. CRANBERRY. [Concomitant]
     Active Substance: CRANBERRY
     Route: 065
  13. RITUXAN [Suspect]
     Active Substance: RITUXIMAB
     Route: 042
     Dates: start: 20150130
  14. PROPANOLOL [Concomitant]
     Active Substance: PROPRANOLOL HYDROCHLORIDE
     Indication: TACHYCARDIA
  15. DIPHENHYDRAMINE. [Concomitant]
     Active Substance: DIPHENHYDRAMINE
     Indication: PREMEDICATION
     Route: 048
     Dates: start: 20131125
  16. METHYLPREDNISOLONE. [Concomitant]
     Active Substance: METHYLPREDNISOLONE
     Indication: PREMEDICATION
     Route: 042
     Dates: start: 20131125
  17. HYDROCHLOROTHIAZIDE. [Concomitant]
     Active Substance: HYDROCHLOROTHIAZIDE
  18. CITALOPRAM [Concomitant]
     Active Substance: CITALOPRAM HYDROBROMIDE
  19. OXYBUTYNIN [Concomitant]
     Active Substance: OXYBUTYNIN

REACTIONS (12)
  - Hypersensitivity [Recovering/Resolving]
  - Blood pressure increased [Unknown]
  - Heart rate increased [Unknown]
  - Infusion related reaction [Unknown]
  - Emphysema [Unknown]
  - Musculoskeletal stiffness [Unknown]
  - Fungal infection [Not Recovered/Not Resolved]
  - Smoke sensitivity [Unknown]
  - Tooth abscess [Unknown]
  - Weight decreased [Unknown]
  - Diverticulitis [Unknown]
  - Paraesthesia [Recovered/Resolved]

NARRATIVE: CASE EVENT DATE: 20131126
